FAERS Safety Report 10222531 (Version 2)
Quarter: 2014Q3

REPORT INFORMATION
  Report Type: Spontaneous
  Country: IT (occurrence: IT)
  Receive Date: 20140606
  Receipt Date: 20140825
  Transmission Date: 20150326
  Serious: Yes (Hospitalization)
  Sender: FDA-Public Use
  Company Number: IT-GE HEALTHCARE MEDICAL DIAGNOSTICS-OMPQ-PR-1405S-0578

PATIENT
  Age: 46 Year
  Sex: Female

DRUGS (2)
  1. OMNIPAQUE [Suspect]
     Active Substance: IOHEXOL
     Indication: HAEMANGIOMA
     Dosage: DOSE NOT REPORTED
     Route: 065
     Dates: start: 20140408, end: 20140408
  2. OMNIPAQUE [Suspect]
     Active Substance: IOHEXOL
     Indication: DIAGNOSTIC PROCEDURE

REACTIONS (4)
  - Agitation [Unknown]
  - Hypersensitivity [Unknown]
  - Respiratory failure [Unknown]
  - Tachycardia [Unknown]

NARRATIVE: CASE EVENT DATE: 20140408
